FAERS Safety Report 5649578-0 (Version None)
Quarter: 2008Q1

REPORT INFORMATION
  Report Type: 
  Country: None (occurrence: None)
  Receive Date: 20080131
  Receipt Date: 20071113
  Transmission Date: 20080703
  Serious: No
  Sender: FDA-Public Use
  Company Number: US200711003266

PATIENT
  Age: 65 Year
  Sex: Female
  Weight: 70.7 kg

DRUGS (4)
  1. BYETTA(EXENATIDE) PEN, DISPOSBLE [Suspect]
     Indication: TYPE 2 DIABETES MELLITUS
     Dosage: 5 UG, 2/D, SUBCUTANEOUS, 10 UG, 2/D, SUBCUTANEOUS
     Route: 058
     Dates: start: 20070301, end: 20070401
  2. BYETTA(EXENATIDE) PEN, DISPOSBLE [Suspect]
     Indication: TYPE 2 DIABETES MELLITUS
     Dosage: 5 UG, 2/D, SUBCUTANEOUS, 10 UG, 2/D, SUBCUTANEOUS
     Route: 058
     Dates: start: 20070401
  3. EXENATIDE 10 MCG PEN, DISPOSABLE DEVICE (EXENATIDE PEN, DISPOSABLE [Concomitant]
  4. METFORMIN HCL [Concomitant]

REACTIONS (2)
  - HYPOAESTHESIA ORAL [None]
  - WEIGHT DECREASED [None]
